FAERS Safety Report 17539130 (Version 1)
Quarter: 2020Q1

REPORT INFORMATION
  Report Type: Spontaneous
  Country: US (occurrence: US)
  Receive Date: 20200306
  Receipt Date: 20200306
  Transmission Date: 20200409
  Serious: Yes (Hospitalization)
  Sender: FDA-Public Use
  Company Number: None

PATIENT
  Age: 55 Year
  Sex: Female

DRUGS (11)
  1. ASPIRIN. [Concomitant]
     Active Substance: ASPIRIN
  2. PROAIR HFA AER [Concomitant]
  3. FENOFIBRATE. [Concomitant]
     Active Substance: FENOFIBRATE
  4. ISOSORB MONO [Concomitant]
     Active Substance: ISOSORBIDE MONONITRATE
  5. PANTOPRAZOLE [Concomitant]
     Active Substance: PANTOPRAZOLE
  6. LOSARTAN POT [Concomitant]
     Active Substance: LOSARTAN POTASSIUM
  7. REPATHA [Suspect]
     Active Substance: EVOLOCUMAB
     Indication: HYPERLIPIDAEMIA
     Dosage: ?          OTHER DOSE:1 PEN;OTHER FREQUENCY:BIM;?
     Route: 058
     Dates: start: 20190412
  8. ALPRAZOLAM. [Concomitant]
     Active Substance: ALPRAZOLAM
  9. ESTRADIOL. [Concomitant]
     Active Substance: ESTRADIOL
  10. NORCO [Concomitant]
     Active Substance: ACETAMINOPHEN\HYDROCODONE BITARTRATE
  11. RANEXA [Concomitant]
     Active Substance: RANOLAZINE

REACTIONS (1)
  - Coronary artery bypass [None]

NARRATIVE: CASE EVENT DATE: 20200220
